FAERS Safety Report 20411025 (Version 1)
Quarter: 2022Q1

REPORT INFORMATION
  Report Type: Report from Study
  Country: US (occurrence: US)
  Receive Date: 20220201
  Receipt Date: 20220201
  Transmission Date: 20220424
  Serious: Yes (Other)
  Sender: FDA-Public Use
  Company Number: US-UCBSA-2022003097

PATIENT
  Sex: Female

DRUGS (4)
  1. ROTIGOTINE [Suspect]
     Active Substance: ROTIGOTINE
     Indication: Parkinson^s disease
     Dosage: 1 MILLIGRAM, ONCE DAILY (QD)
  2. ROTIGOTINE [Suspect]
     Active Substance: ROTIGOTINE
     Dosage: EXTRA DOSE ADMINISTERED
  3. ETESEVIMAB [Concomitant]
     Active Substance: ETESEVIMAB
     Indication: COVID-19
  4. BAMLANIVIMAB [Concomitant]
     Active Substance: BAMLANIVIMAB
     Indication: COVID-19

REACTIONS (5)
  - Angina pectoris [Not Recovered/Not Resolved]
  - Back pain [Not Recovered/Not Resolved]
  - COVID-19 immunisation [Unknown]
  - Extra dose administered [Unknown]
  - Underdose [Unknown]
